FAERS Safety Report 10206858 (Version 1)
Quarter: 2014Q2

REPORT INFORMATION
  Report Type: Spontaneous
  Country: US (occurrence: None)
  Receive Date: 20140527
  Receipt Date: 20140527
  Transmission Date: 20141212
  Serious: Yes (Disabling)
  Sender: FDA-Public Use
  Company Number: None

PATIENT
  Age: 62 Year
  Sex: Male
  Weight: 74.84 kg

DRUGS (4)
  1. XIFAXAN [Suspect]
     Indication: HEPATIC ENCEPHALOPATHY PROPHYLAXIS
     Dosage: 1 TABLET BID ORAL
     Route: 048
     Dates: start: 20140129, end: 20140515
  2. LACTULOSE [Concomitant]
  3. ALPRAZOLAM [Concomitant]
  4. FLUOXETINE [Concomitant]

REACTIONS (3)
  - Muscular weakness [None]
  - Activities of daily living impaired [None]
  - Myalgia [None]
